FAERS Safety Report 15215369 (Version 3)
Quarter: 2018Q4

REPORT INFORMATION
  Report Type: Spontaneous
  Country: US (occurrence: US)
  Receive Date: 20180730
  Receipt Date: 20181008
  Transmission Date: 20190204
  Serious: No
  Sender: FDA-Public Use
  Company Number: US-SUNOVION-2018SUN002902

PATIENT

DRUGS (2)
  1. LATUDA [Suspect]
     Active Substance: LURASIDONE HYDROCHLORIDE
     Dosage: UNK
     Route: 048
  2. TRAZODONE [Concomitant]
     Active Substance: TRAZODONE HYDROCHLORIDE

REACTIONS (14)
  - Hallucination, auditory [Unknown]
  - Somnambulism [Unknown]
  - Hypersomnia [Unknown]
  - Poor quality sleep [Unknown]
  - Intrusive thoughts [Unknown]
  - Paranoia [Unknown]
  - Abnormal dreams [Unknown]
  - Illusion [Unknown]
  - Fatigue [Unknown]
  - Insomnia [Unknown]
  - Sleep disorder [Unknown]
  - Abnormal sleep-related event [Unknown]
  - Sleep talking [Unknown]
  - Middle insomnia [Unknown]
